FAERS Safety Report 24240139 (Version 1)
Quarter: 2024Q3

REPORT INFORMATION
  Report Type: Spontaneous
  Country: LT (occurrence: LT)
  Receive Date: 20240822
  Receipt Date: 20240822
  Transmission Date: 20241016
  Serious: Yes (Life-Threatening, Hospitalization, Other)
  Sender: TEVA
  Company Number: None

PATIENT
  Sex: Male

DRUGS (1)
  1. DONEPEZIL [Suspect]
     Active Substance: DONEPEZIL\DONEPEZIL HYDROCHLORIDE
     Indication: Schizophrenia
     Dosage: 1 TABLET IN THE EVENINGS?DONEPEZIL ACTAVIS
     Route: 048
     Dates: start: 202406

REACTIONS (7)
  - Coma [Not Recovered/Not Resolved]
  - Medication error [Not Recovered/Not Resolved]
  - Seizure [Unknown]
  - Asthenia [Unknown]
  - Insomnia [Unknown]
  - Malaise [Unknown]
  - Loss of consciousness [Not Recovered/Not Resolved]

NARRATIVE: CASE EVENT DATE: 20240601
